FAERS Safety Report 6882459-3 (Version None)
Quarter: 2010Q3

REPORT INFORMATION
  Report Type: 
  Country: None (occurrence: None)
  Receive Date: 20100728
  Receipt Date: 20100728
  Transmission Date: 20110219
  Serious: Yes (Hospitalization)
  Sender: FDA-Public Use
  Company Number: None

PATIENT
  Age: 55 Year
  Sex: Male

DRUGS (2)
  1. DOXYCYCLINE [Suspect]
     Indication: UPPER RESPIRATORY TRACT INFECTION
     Dates: start: 20100609
  2. LAMOTRIGINE [Suspect]
     Indication: CONVULSION
     Dates: start: 20100301

REACTIONS (1)
  - STEVENS-JOHNSON SYNDROME [None]
